FAERS Safety Report 4773794-3 (Version None)
Quarter: 2005Q3

REPORT INFORMATION
  Report Type: 
  Country: None (occurrence: None)
  Receive Date: 20050920
  Receipt Date: 20050802
  Transmission Date: 20060218
  Serious: Yes (Hospitalization, Other)
  Sender: FDA-Public Use
  Company Number: JP-NOVOPROD-246015

PATIENT
  Age: 4 Year
  Sex: Male
  Weight: 11 kg

DRUGS (1)
  1. NORDITROPIN [Suspect]
     Indication: GROWTH HORMONE DEFICIENCY
     Dosage: 1.9 MG/WEEK
     Route: 058
     Dates: start: 20040905, end: 20050731

REACTIONS (9)
  - DECREASED APPETITE [None]
  - GAIT DISTURBANCE [None]
  - HEADACHE [None]
  - INTRACRANIAL PRESSURE INCREASED [None]
  - MALAISE [None]
  - PAPILLOEDEMA [None]
  - STRABISMUS [None]
  - VITH NERVE PARALYSIS [None]
  - VOMITING [None]
